FAERS Safety Report 4533033-5 (Version None)
Quarter: 2004Q4

REPORT INFORMATION
  Report Type: 
  Country: None (occurrence: None)
  Receive Date: 20041206
  Receipt Date: 20041014
  Transmission Date: 20050328
  Serious: No
  Sender: FDA-Public Use
  Company Number: USA041081167

PATIENT
  Sex: Male

DRUGS (1)
  1. CYMBALTA [Suspect]
     Dosage: 30 MG/ 1 DAY
     Dates: start: 20041001, end: 20041001

REACTIONS (4)
  - FLUSHING [None]
  - HOT FLUSH [None]
  - INSOMNIA [None]
  - PALPITATIONS [None]
